FAERS Safety Report 16382773 (Version 1)
Quarter: 2019Q2

REPORT INFORMATION
  Report Type: Spontaneous
  Country: IT (occurrence: IT)
  Receive Date: 20190603
  Receipt Date: 20190603
  Transmission Date: 20190711
  Serious: Yes (Other)
  Sender: FDA-Public Use
  Company Number: IT-PFIZER INC-2019235496

PATIENT
  Age: 66 Year
  Sex: Male
  Weight: 85 kg

DRUGS (4)
  1. FLUOROURACIL. [Suspect]
     Active Substance: FLUOROURACIL
     Indication: OESOPHAGEAL ADENOCARCINOMA STAGE IV
     Dosage: 4800 MG, CYCLIC
     Route: 042
     Dates: start: 20190318, end: 20190415
  2. OXALIPLATIN. [Suspect]
     Active Substance: OXALIPLATIN
     Indication: OESOPHAGEAL ADENOCARCINOMA STAGE IV
     Dosage: 170 MG, CYCLIC
     Route: 042
     Dates: start: 20190318, end: 20190415
  3. FLUOROURACIL. [Suspect]
     Active Substance: FLUOROURACIL
     Dosage: 800 MG, CYCLIC
     Route: 040
     Dates: start: 20190318, end: 20190415
  4. LEVOLEUCOVORIN [LEVOFOLINIC ACID] [Concomitant]
     Indication: OESOPHAGEAL ADENOCARCINOMA STAGE IV
     Dosage: 400 MG, UNK
     Route: 042
     Dates: start: 20190318, end: 20190415

REACTIONS (1)
  - Hypertransaminasaemia [Recovering/Resolving]

NARRATIVE: CASE EVENT DATE: 20190411
